FAERS Safety Report 6630816-2 (Version None)
Quarter: 2010Q1

REPORT INFORMATION
  Report Type: 
  Country: None (occurrence: None)
  Receive Date: 20100310
  Receipt Date: 20100310
  Transmission Date: 20100710
  Serious: Yes (Hospitalization)
  Sender: FDA-Public Use
  Company Number: None

PATIENT
  Sex: Male
  Weight: 78 kg

DRUGS (14)
  1. THALIDOMIDE [Suspect]
     Dosage: 6000 MG
  2. CELEBREX [Suspect]
     Dosage: 6000 MG
  3. TEMOZOLOMIDE [Suspect]
     Dosage: 2400 MG
  4. DECADRON [Concomitant]
  5. GLUCOPHAGE [Concomitant]
  6. INSULIN [Concomitant]
  7. KEPPRA [Concomitant]
  8. LORAZEPAM [Concomitant]
  9. OXYCODONE [Concomitant]
  10. PEPCID AC [Concomitant]
  11. POLYETHYLENE GLYCOL [Concomitant]
  12. PROCLORPERAZINE MALATE [Concomitant]
  13. SENNA [Concomitant]
  14. SYNTHROID [Concomitant]

REACTIONS (2)
  - MUSCULOSKELETAL PAIN [None]
  - PULMONARY EMBOLISM [None]
